FAERS Safety Report 6980750-3 (Version None)
Quarter: 2010Q3

REPORT INFORMATION
  Report Type: 
  Country: None (occurrence: None)
  Receive Date: 20100914
  Receipt Date: 20100902
  Transmission Date: 20110219
  Serious: No
  Sender: FDA-Public Use
  Company Number: US-B.I. PHARMACEUTICALS,INC./RIDGEFIELD-2010-BP-10150BP

PATIENT
  Sex: Female

DRUGS (2)
  1. ZANTAC 150 [Suspect]
     Indication: GASTRITIS
     Dosage: 300 MG
     Route: 048
     Dates: start: 20100901
  2. REGLAN [Suspect]
     Indication: GASTRITIS
     Dates: start: 20100901

REACTIONS (1)
  - FAECES DISCOLOURED [None]
